FAERS Safety Report 17671619 (Version 1)
Quarter: 2020Q2

REPORT INFORMATION
  Report Type: Spontaneous
  Country: US (occurrence: US)
  Receive Date: 20200415
  Receipt Date: 20200415
  Transmission Date: 20200713
  Serious: No
  Sender: FDA-Public Use
  Company Number: US-ASTRAZENECA-2020SE51160

PATIENT
  Age: 24004 Day
  Sex: Male
  Weight: 125.6 kg

DRUGS (15)
  1. WELLBUTRIN [Concomitant]
     Active Substance: BUPROPION HYDROCHLORIDE
  2. TYLENOL PM [Concomitant]
     Active Substance: ACETAMINOPHEN\DIPHENHYDRAMINE
  3. SENNA-S [Concomitant]
     Active Substance: DOCUSATE SODIUM\SENNOSIDES
  4. NORVASC [Concomitant]
     Active Substance: AMLODIPINE BESYLATE
  5. ASPIRIN. [Concomitant]
     Active Substance: ASPIRIN
  6. SEROQUEL [Suspect]
     Active Substance: QUETIAPINE FUMARATE
     Dosage: 100 MG, 1X/DAY AT BED TIME
     Route: 048
     Dates: end: 20200211
  7. SEROQUEL [Suspect]
     Active Substance: QUETIAPINE FUMARATE
     Dosage: 50 MG AT BED TIME
     Route: 048
     Dates: start: 20200212
  8. MIRALAX [Concomitant]
     Active Substance: POLYETHYLENE GLYCOL 3350
  9. MELOXICAM. [Concomitant]
     Active Substance: MELOXICAM
  10. LASIX [Concomitant]
     Active Substance: FUROSEMIDE
  11. VITAMIN B12 [Concomitant]
     Active Substance: CYANOCOBALAMIN
  12. GOCOVRI [Concomitant]
     Active Substance: AMANTADINE
     Route: 048
     Dates: start: 20200128
  13. REQUIP [Concomitant]
     Active Substance: ROPINIROLE HYDROCHLORIDE
  14. TRAMADOL. [Concomitant]
     Active Substance: TRAMADOL
  15. MYRBETRIQ [Concomitant]
     Active Substance: MIRABEGRON

REACTIONS (8)
  - Asthenia [Unknown]
  - Hallucination, visual [Recovering/Resolving]
  - Hypersomnia [Unknown]
  - Contusion [Unknown]
  - Fall [Unknown]
  - Posture abnormal [Unknown]
  - Dizziness [Unknown]
  - Dysstasia [Unknown]

NARRATIVE: CASE EVENT DATE: 20200210
